FAERS Safety Report 12904598 (Version 1)
Quarter: 2016Q4

REPORT INFORMATION
  Report Type: Spontaneous
  Country: US (occurrence: US)
  Receive Date: 20161102
  Receipt Date: 20161102
  Transmission Date: 20170207
  Serious: No
  Sender: FDA-Public Use
  Company Number: US-009507513-1610USA013777

PATIENT
  Sex: Female
  Weight: 63.49 kg

DRUGS (7)
  1. SERTRALINE HYDROCHLORIDE. [Concomitant]
     Active Substance: SERTRALINE HYDROCHLORIDE
  2. MOTRIN [Concomitant]
     Active Substance: IBUPROFEN
  3. VICODIN [Concomitant]
     Active Substance: ACETAMINOPHEN\HYDROCODONE BITARTRATE
  4. KLONOPIN [Concomitant]
     Active Substance: CLONAZEPAM
  5. HYDROCODONE [Concomitant]
     Active Substance: HYDROCODONE
  6. THERAPY UNSPECIFIED [Interacting]
     Active Substance: UNSPECIFIED INGREDIENT
  7. NEXPLANON [Suspect]
     Active Substance: ETONOGESTREL
     Indication: CONTRACEPTION
     Dosage: 1 DF, 3 YEARS
     Route: 059
     Dates: start: 20161006

REACTIONS (7)
  - Hot flush [Unknown]
  - Dyspnoea [Unknown]
  - Implant site pruritus [Unknown]
  - Mood swings [Unknown]
  - Headache [Unknown]
  - Drug interaction [Unknown]
  - Weight decreased [Unknown]

NARRATIVE: CASE EVENT DATE: 2016
